FAERS Safety Report 5951135-3 (Version None)
Quarter: 2008Q4

REPORT INFORMATION
  Report Type: 
  Country: None (occurrence: None)
  Receive Date: 20081112
  Receipt Date: 20081112
  Transmission Date: 20090506
  Serious: Yes (Other)
  Sender: FDA-Public Use
  Company Number: None

PATIENT
  Age: 55 Year
  Sex: Female
  Weight: 61.6892 kg

DRUGS (1)
  1. TOPROL-XL [Suspect]
     Indication: MITRAL VALVE PROLAPSE
     Dosage: 25MG TWICE A DAY PO
     Route: 048
     Dates: start: 20080923, end: 20081111

REACTIONS (8)
  - BLOOD PRESSURE INCREASED [None]
  - CHEST PAIN [None]
  - CONDITION AGGRAVATED [None]
  - DYSPNOEA [None]
  - MITRAL VALVE PROLAPSE [None]
  - PRODUCT QUALITY ISSUE [None]
  - TACHYCARDIA [None]
  - THERAPEUTIC RESPONSE UNEXPECTED WITH DRUG SUBSTITUTION [None]
